FAERS Safety Report 4414825-X (Version None)
Quarter: 2004Q3

REPORT INFORMATION
  Report Type: 
  Country: None (occurrence: None)
  Receive Date: 20040804
  Receipt Date: 20031103
  Transmission Date: 20050211
  Serious: No
  Sender: FDA-Public Use
  Company Number: US-BRISTOL-MYERS SQUIBB COMPANY-12425534

PATIENT
  Age: 72 Year
  Sex: Male
  Weight: 113 kg

DRUGS (9)
  1. GLUCOVANCE [Suspect]
     Indication: DIABETES MELLITUS
     Dosage: DOSAGE FORM = TABLET (5MG/500MG PER TABLET)
     Route: 048
  2. NIFEDIPINE [Concomitant]
  3. KETOCONAZOLE [Concomitant]
  4. CORTEF [Concomitant]
  5. LASIX [Concomitant]
  6. SPIRONOLACTONE [Concomitant]
  7. LISINOPRIL [Concomitant]
  8. NIACIN [Concomitant]
  9. HYDROCODONE [Concomitant]

REACTIONS (1)
  - HYPOGLYCAEMIA [None]
